FAERS Safety Report 22625484 (Version 6)
Quarter: 2024Q1

REPORT INFORMATION
  Report Type: Report from Study
  Country: US (occurrence: US)
  Receive Date: 20230621
  Receipt Date: 20240110
  Transmission Date: 20240410
  Serious: No
  Sender: FDA-Public Use
  Company Number: US-BIOVITRUM-2023-US-011926

PATIENT
  Age: 62 Year
  Sex: Female

DRUGS (1)
  1. KINERET [Suspect]
     Active Substance: ANAKINRA
     Indication: Rheumatoid arthritis
     Dosage: 100 MG DAILY
     Route: 058
     Dates: start: 20230531

REACTIONS (18)
  - Blood pressure increased [Unknown]
  - Rash papular [Unknown]
  - Rash pruritic [Unknown]
  - Liquid product physical issue [Unknown]
  - Adverse drug reaction [Unknown]
  - Nausea [Unknown]
  - Vomiting [Unknown]
  - Diarrhoea [Unknown]
  - Injection site pruritus [Unknown]
  - Injection site erythema [Unknown]
  - Injection site infection [Unknown]
  - Abdominal pain upper [Unknown]
  - Frequent bowel movements [Unknown]
  - Injection site papule [Unknown]
  - Injection site hypersensitivity [Unknown]
  - Injection site swelling [Unknown]
  - Blood cholesterol abnormal [Unknown]
  - Intentional dose omission [Unknown]
